FAERS Safety Report 5430807-3 (Version None)
Quarter: 2007Q3

REPORT INFORMATION
  Report Type: 
  Country: None (occurrence: None)
  Receive Date: 20070830
  Receipt Date: 20061129
  Transmission Date: 20080115
  Serious: No
  Sender: FDA-Public Use
  Company Number: A0629452A

PATIENT
  Age: 50 Year
  Sex: Male

DRUGS (3)
  1. WELLBUTRIN XL [Suspect]
     Indication: DEPRESSION
     Dosage: 300MG PER DAY
     Route: 048
     Dates: start: 20060901
  2. ATACAND [Concomitant]
  3. LORTAB [Concomitant]

REACTIONS (3)
  - BLOOD PRESSURE DECREASED [None]
  - HEADACHE [None]
  - THERAPEUTIC RESPONSE UNEXPECTED [None]
